FAERS Safety Report 16831696 (Version 1)
Quarter: 2019Q3

REPORT INFORMATION
  Report Type: Spontaneous
  Country: GB (occurrence: GB)
  Receive Date: 20190920
  Receipt Date: 20190920
  Transmission Date: 20191005
  Serious: Yes (Other)
  Sender: FDA-Public Use
  Company Number: GB-ACCORD-155230

PATIENT
  Age: 85 Year
  Sex: Male

DRUGS (1)
  1. DONEPEZIL/DONEPEZIL HYDROCHLORIDE [Suspect]
     Active Substance: DONEPEZIL HYDROCHLORIDE
     Indication: DEMENTIA
     Dosage: 5MG AT NIGHT
     Dates: start: 201811

REACTIONS (5)
  - Anxiety [Unknown]
  - Agitation [Unknown]
  - Delusion [Unknown]
  - Aggression [Unknown]
  - Confusional state [Unknown]
